FAERS Safety Report 25753688 (Version 2)
Quarter: 2025Q4

REPORT INFORMATION
  Report Type: Spontaneous
  Country: JP (occurrence: JP)
  Receive Date: 20250903
  Receipt Date: 20251124
  Transmission Date: 20260117
  Serious: Yes (Death, Other)
  Sender: MERCK SHARP & DOHME LLC
  Company Number: JP-009507513-2323957

PATIENT
  Age: 77 Year
  Sex: Female

DRUGS (1)
  1. KEYTRUDA [Suspect]
     Active Substance: PEMBROLIZUMAB
     Indication: Squamous cell carcinoma of head and neck

REACTIONS (5)
  - Cardiac disorder [Fatal]
  - Interstitial lung disease [Unknown]
  - Eastern Cooperative Oncology Group performance status worsened [Unknown]
  - Malaise [Unknown]
  - Dizziness [Unknown]
